FAERS Safety Report 4802808-7 (Version None)
Quarter: 2005Q4

REPORT INFORMATION
  Report Type: 
  Country: None (occurrence: None)
  Receive Date: 20051013
  Receipt Date: 20050922
  Transmission Date: 20060501
  Serious: Yes (Other)
  Sender: FDA-Public Use
  Company Number: US_0509122141

PATIENT
  Age: 12 Year
  Sex: Female
  Weight: 73 kg

DRUGS (1)
  1. STRATTERA [Suspect]
     Indication: ATTENTION DEFICIT/HYPERACTIVITY DISORDER
     Dosage: 25 MG DAY
     Dates: start: 20050823, end: 20050905

REACTIONS (3)
  - GRAND MAL CONVULSION [None]
  - HEADACHE [None]
  - MUSCULOSKELETAL STIFFNESS [None]
